FAERS Safety Report 10042918 (Version 3)
Quarter: 2014Q2

REPORT INFORMATION
  Report Type: Spontaneous
  Country: ES (occurrence: ES)
  Receive Date: 20140328
  Receipt Date: 20140417
  Transmission Date: 20141212
  Serious: Yes (Death)
  Sender: FDA-Public Use
  Company Number: ES-ROCHE-1371602

PATIENT
  Age: 82 Year
  Sex: Male

DRUGS (2)
  1. XELODA [Suspect]
     Indication: COLON CANCER STAGE IV
     Route: 048
     Dates: start: 2014
  2. XELODA [Suspect]
     Indication: COLON CANCER STAGE IV
     Route: 048

REACTIONS (1)
  - Gastrointestinal inflammation [Fatal]
